FAERS Safety Report 18290765 (Version 2)
Quarter: 2020Q4

REPORT INFORMATION
  Report Type: Report from Study
  Country: ES (occurrence: ES)
  Receive Date: 20200921
  Receipt Date: 20201007
  Transmission Date: 20210113
  Serious: Yes (Hospitalization, Other)
  Sender: FDA-Public Use
  Company Number: NVSC2020ES247967

PATIENT
  Age: 62 Year
  Sex: Male
  Weight: 65 kg

DRUGS (31)
  1. BYL719 [Suspect]
     Active Substance: ALPELISIB
     Indication: HEPATIC CANCER STAGE IV
     Dosage: 300 MG, Q24H
     Route: 048
     Dates: start: 20200722, end: 20200728
  2. SALINE [Concomitant]
     Active Substance: SODIUM CHLORIDE
     Indication: AGITATION
     Dosage: 500 ML, Q8H
     Route: 042
     Dates: start: 20200731, end: 20200803
  3. LORMETAZEPAM [Concomitant]
     Active Substance: LORMETAZEPAM
     Indication: PRODUCT USED FOR UNKNOWN INDICATION
     Dosage: 1 MG, QD (TABLETS, 1 UPON WAKING)
     Route: 048
     Dates: start: 20200728, end: 20200806
  4. FUROSEMIDE. [Concomitant]
     Active Substance: FUROSEMIDE
     Dosage: 40 MG, QD (TABLETS, 1 AT BREAKFAST)
     Route: 048
     Dates: start: 20200824, end: 20200825
  5. INSULIN [Concomitant]
     Active Substance: INSULIN NOS
     Indication: PRODUCT USED FOR UNKNOWN INDICATION
     Dosage: UNK (1 BEFORE OF BREAKFAST-LUNCH-DINNER)
     Route: 058
     Dates: start: 20200814, end: 20200822
  6. METAMIZOL [Concomitant]
     Active Substance: METAMIZOLE SODIUM
     Indication: PRODUCT USED FOR UNKNOWN INDICATION
     Dosage: 2G/5ML, Q8H (INJECTION, 1 S/P MAXIMUM)
     Route: 042
     Dates: start: 20200728, end: 20200730
  7. SALINE [Concomitant]
     Active Substance: SODIUM CHLORIDE
     Dosage: 500 ML, Q12H
     Route: 042
     Dates: start: 20200814, end: 20200819
  8. ABSTRAL [Concomitant]
     Active Substance: FENTANYL CITRATE
     Dosage: UNK (S/P MAXIMUM EVERY 4 HOURS)
     Route: 065
     Dates: start: 20200814, end: 20200825
  9. PARACETAMOL [Concomitant]
     Active Substance: ACETAMINOPHEN
     Indication: PAIN
     Dosage: UNK (1G/100ML, 1 S/P MAXIMUM EVERY 8 HOURS)
     Route: 042
     Dates: start: 20200728, end: 20200805
  10. OMEPRAZOLE. [Concomitant]
     Active Substance: OMEPRAZOLE
     Indication: PRODUCT USED FOR UNKNOWN INDICATION
     Dosage: 20 MG, QD (CAPSULE, 1 AT BREAKFAST)
     Route: 048
     Dates: start: 20200728, end: 20200806
  11. OMEPRAZOLE. [Concomitant]
     Active Substance: OMEPRAZOLE
     Dosage: 20 MG, BID (CAPSULE, 1 AT BREAKFAST AND AT DINNER)
     Route: 048
     Dates: start: 20200824, end: 20200825
  12. FUROSEMIDE. [Concomitant]
     Active Substance: FUROSEMIDE
     Indication: PRODUCT USED FOR UNKNOWN INDICATION
     Dosage: 20 MG, Q12H
     Route: 042
     Dates: start: 20200814, end: 20200814
  13. SALINE [Concomitant]
     Active Substance: SODIUM CHLORIDE
     Dosage: 500 ML, Q12H (+10 MEQ KICK BAG)
     Route: 042
     Dates: start: 20200819, end: 20200821
  14. LEVOFLOXACIN. [Concomitant]
     Active Substance: LEVOFLOXACIN
     Indication: PRODUCT USED FOR UNKNOWN INDICATION
     Dosage: 1 DF
     Route: 042
     Dates: start: 20200814, end: 20200814
  15. PARACETAMOL [Concomitant]
     Active Substance: ACETAMINOPHEN
     Dosage: 1 G, Q8H (SACHETS, 1 S/P MAXIMUM)
     Route: 048
     Dates: start: 20200805, end: 20200806
  16. LORMETAZEPAM [Concomitant]
     Active Substance: LORMETAZEPAM
     Dosage: UNK (1 S/P UPON WAKING)
     Route: 048
     Dates: start: 20200814, end: 20200816
  17. OMEPRAZOLE. [Concomitant]
     Active Substance: OMEPRAZOLE
     Dosage: 1 DF, Q24H (40 MG, INJECTION)
     Route: 065
     Dates: start: 20200814, end: 20200824
  18. SALINE [Concomitant]
     Active Substance: SODIUM CHLORIDE
     Dosage: 500 ML, Q12H (PLASTIC VIAL)
     Route: 042
     Dates: start: 20200803, end: 20200805
  19. SALINE [Concomitant]
     Active Substance: SODIUM CHLORIDE
     Dosage: 500 ML, Q8H
     Route: 042
     Dates: start: 20200814, end: 20200814
  20. HALOPERIDOL. [Concomitant]
     Active Substance: HALOPERIDOL
     Indication: PRODUCT USED FOR UNKNOWN INDICATION
     Dosage: 1 DRP, Q8H (0.1MG = 1 DROP) SOLUTION, 8 S/P MAXIMUM
     Route: 048
     Dates: start: 20200818, end: 20200825
  21. BYL719 [Suspect]
     Active Substance: ALPELISIB
     Indication: PIK3CA-ACTIVATED MUTATION
     Dosage: 300 MG, Q24H
     Route: 048
     Dates: start: 20200730
  22. BYL719 [Suspect]
     Active Substance: ALPELISIB
     Dosage: 300 MG, Q24H
     Route: 048
     Dates: end: 20200814
  23. PARACETAMOL [Concomitant]
     Active Substance: ACETAMINOPHEN
     Dosage: 1 G, Q8H (SACHETS, 1 S/P MAXIMUM)
     Route: 048
     Dates: start: 20200824, end: 20200825
  24. LORAZEPAM. [Concomitant]
     Active Substance: LORAZEPAM
     Indication: PRODUCT USED FOR UNKNOWN INDICATION
     Dosage: 1 DF, QD
     Route: 048
     Dates: start: 20200818, end: 20200825
  25. ACETYLCYSTEIN [Concomitant]
     Active Substance: ACETYLCYSTEINE
     Indication: PRODUCT USED FOR UNKNOWN INDICATION
     Dosage: 600 MG, Q12H (SACHETS)
     Route: 048
     Dates: start: 20200731, end: 20200801
  26. TIGECYCLINE. [Concomitant]
     Active Substance: TIGECYCLINE
     Indication: PRODUCT USED FOR UNKNOWN INDICATION
     Dosage: 1 DF, Q12H
     Route: 042
     Dates: start: 20200812, end: 20200812
  27. FUROSEMIDE. [Concomitant]
     Active Substance: FUROSEMIDE
     Dosage: 20 MG/M2, (AT BREAKFAST, INJECTION)
     Route: 042
     Dates: start: 20200814, end: 20200824
  28. GLUCOSE [Concomitant]
     Active Substance: DEXTROSE
     Indication: PRODUCT USED FOR UNKNOWN INDICATION
     Dosage: 500 ML, Q24H
     Route: 042
     Dates: start: 20200814, end: 20200818
  29. ABSTRAL [Concomitant]
     Active Substance: FENTANYL CITRATE
     Indication: PRODUCT USED FOR UNKNOWN INDICATION
     Dosage: UNK (S/P MAXIMUM EVERY 4 HOURS)
     Route: 065
     Dates: start: 20200728, end: 20200728
  30. PARACETAMOL [Concomitant]
     Active Substance: ACETAMINOPHEN
     Dosage: UNK (1G/100ML, 1 S/P MAXIMUM EVERY 8 HOURS)
     Route: 042
     Dates: start: 20200814, end: 20200824
  31. ZOLPIDEM [Concomitant]
     Active Substance: ZOLPIDEM TARTRATE
     Indication: PRODUCT USED FOR UNKNOWN INDICATION
     Dosage: 1 DF, QD
     Route: 048
     Dates: start: 20200816, end: 20200818

REACTIONS (26)
  - Small intestine carcinoma [Not Recovered/Not Resolved]
  - Lymphadenopathy [Recovering/Resolving]
  - Product dose omission issue [Unknown]
  - Gastroenteritis [Unknown]
  - Chills [Recovering/Resolving]
  - Fistula of small intestine [Not Recovered/Not Resolved]
  - Renal failure [Recovered/Resolved]
  - Hydronephrosis [Recovering/Resolving]
  - Pallor [Recovering/Resolving]
  - Hyperglycaemia [Recovered/Resolved]
  - Pyrexia [Recovered/Resolved]
  - Diarrhoea [Recovering/Resolving]
  - Hyponatraemia [Recovered/Resolved]
  - Pyrexia [Recovering/Resolving]
  - Febrile neutropenia [Recovered/Resolved]
  - Urinary tract infection [Recovered/Resolved]
  - Oedema [Recovered/Resolved]
  - Hyperglycaemia [Unknown]
  - Atelectasis [Recovering/Resolving]
  - Hypophonesis [Recovering/Resolving]
  - Ascites [Recovering/Resolving]
  - Toxicity to various agents [Unknown]
  - Abdominal pain [Recovering/Resolving]
  - Hyponatraemia [Unknown]
  - Dehydration [Recovering/Resolving]
  - Asthenia [Not Recovered/Not Resolved]

NARRATIVE: CASE EVENT DATE: 20200722
